FAERS Safety Report 8201925-1 (Version None)
Quarter: 2012Q1

REPORT INFORMATION
  Report Type: 
  Country: None (occurrence: None)
  Receive Date: 20120312
  Receipt Date: 20120229
  Transmission Date: 20120608
  Serious: Yes (Hospitalization, Other)
  Sender: FDA-Public Use
  Company Number: PHHY2012FR018256

PATIENT
  Sex: Female

DRUGS (7)
  1. NICARDIPINE HYDROCHLORIDE [Suspect]
     Indication: HYPERTENSION
     Dosage: 3 DF, TID
     Dates: end: 20120127
  2. RASILEZ HCT [Suspect]
     Indication: HYPERTENSION
     Dosage: 1 DF, QD
     Dates: end: 20120127
  3. ASPIRIN [Concomitant]
  4. EUPRESSYL [Suspect]
     Dosage: 2 DF, BID
     Dates: end: 20120127
  5. GALANTAMINE HYDROBROMIDE [Concomitant]
  6. PREVISCAN [Concomitant]
  7. PERINDOPRIL ERBUMINE [Concomitant]

REACTIONS (2)
  - ORTHOSTATIC HYPOTENSION [None]
  - FALL [None]
